FAERS Safety Report 8520000-X (Version None)
Quarter: 2012Q3

REPORT INFORMATION
  Report Type: 
  Country: None (occurrence: None)
  Receive Date: 20120719
  Receipt Date: 20120713
  Transmission Date: 20120928
  Serious: No
  Sender: FDA-Public Use
  Company Number: US-PFIZER INC-2012170666

PATIENT
  Sex: Female
  Weight: 51.2 kg

DRUGS (3)
  1. AMLODIPINE [Concomitant]
     Dosage: 10 MG, UNK
  2. SUTENT [Suspect]
     Indication: RENAL CANCER METASTATIC
     Dosage: 50 MG, UNK
  3. COUMADIN [Concomitant]

REACTIONS (4)
  - REFLUX GASTRITIS [None]
  - DIARRHOEA [None]
  - NAUSEA [None]
  - DYSGEUSIA [None]
